FAERS Safety Report 6059157-1 (Version None)
Quarter: 2009Q1

REPORT INFORMATION
  Report Type: 
  Country: None (occurrence: None)
  Receive Date: 20090130
  Receipt Date: 20070531
  Transmission Date: 20090719
  Serious: Yes (Life-Threatening, Hospitalization)
  Sender: FDA-Public Use
  Company Number: FR-PFIZER INC-2009157610

PATIENT

DRUGS (6)
  1. IRINOTECAN HCL [Suspect]
     Indication: GASTRIC CANCER
  2. FOLINIC ACID [Suspect]
     Indication: GASTRIC CANCER
  3. FLUOROURACIL [Suspect]
     Indication: GASTRIC CANCER
  4. STILNOX [Concomitant]
     Indication: INSOMNIA
     Dosage: 10 MG, UNK
     Route: 048
     Dates: start: 20061107
  5. FORLAX [Concomitant]
     Indication: CONSTIPATION
     Dosage: 10 MG, 3X/DAY
     Route: 048
     Dates: start: 20061121
  6. SKENAN [Concomitant]
     Indication: PAIN
     Dosage: 60 MG, 2X/DAY
     Route: 048
     Dates: start: 20060817

REACTIONS (1)
  - CARDIOMYOPATHY [None]
